FAERS Safety Report 5951663-0 (Version None)
Quarter: 2008Q4

REPORT INFORMATION
  Report Type: 
  Country: None (occurrence: None)
  Receive Date: 20081110
  Receipt Date: 20081030
  Transmission Date: 20090506
  Serious: Yes (Other)
  Sender: FDA-Public Use
  Company Number: 2008-02283

PATIENT
  Sex: Female

DRUGS (24)
  1. VELCADE [Suspect]
     Indication: MULTIPLE MYELOMA
     Dosage: 1.4 MG, UNK, INTRAVENOUS, 1.8 MG, UNK, INTRAVENOUS, 1.7 MG, UNK, INTRAVENOUS
     Route: 042
     Dates: start: 20071214, end: 20080213
  2. VELCADE [Suspect]
     Indication: MULTIPLE MYELOMA
     Dosage: 1.4 MG, UNK, INTRAVENOUS, 1.8 MG, UNK, INTRAVENOUS, 1.7 MG, UNK, INTRAVENOUS
     Route: 042
     Dates: start: 20080222, end: 20080227
  3. VELCADE [Suspect]
     Indication: MULTIPLE MYELOMA
     Dosage: 1.4 MG, UNK, INTRAVENOUS, 1.8 MG, UNK, INTRAVENOUS, 1.7 MG, UNK, INTRAVENOUS
     Route: 042
     Dates: start: 20080616, end: 20080627
  4. NIZATIDINE [Concomitant]
  5. BACTRIM [Concomitant]
  6. ACIROVEC (ACICLOVIR) [Concomitant]
  7. METHYCOBAL (MECOBALAMIN) [Concomitant]
  8. MARZULENE S (LEVOGLUTAMIDE, SODIUM GUALENATE) [Concomitant]
  9. ATP (ADENOSINE TRIPHOSPHATE, DISODIUM SALT) [Concomitant]
  10. HUMULIN R [Concomitant]
  11. KYTRIL [Concomitant]
  12. DEXAMETHASONE SODIUM PHOSPHATE [Concomitant]
  13. BONALON [Concomitant]
  14. ITRACONAZOLE [Concomitant]
  15. ZOLPIDEM TARTRATE [Concomitant]
  16. SP (DEQUALINIUM CHLORIDE) [Concomitant]
  17. CALCIUM L-ASPARTRATE [Concomitant]
  18. CALCICOL (CALCIUM GLUCONATE) [Concomitant]
  19. NIPOLAZIN (MEQUITAZINE) [Concomitant]
  20. MAGNESIUM OXIDE (MAGNESIUM OXIDE) [Concomitant]
  21. SENNOSIDE [Concomitant]
  22. LOPERAMIDE HCL [Concomitant]
  23. HYOSCINE HBR HYT [Concomitant]
  24. PLATELETS [Concomitant]

REACTIONS (6)
  - ASTHMA [None]
  - CONSTIPATION [None]
  - ENTEROCOLITIS [None]
  - NEUROPATHY PERIPHERAL [None]
  - OROPHARYNGEAL PAIN [None]
  - PNEUMONIA [None]
